FAERS Safety Report 20305773 (Version 2)
Quarter: 2022Q1

REPORT INFORMATION
  Report Type: Report from Study
  Country: US (occurrence: US)
  Receive Date: 20220106
  Receipt Date: 20220315
  Transmission Date: 20220423
  Serious: Yes (Hospitalization, Other)
  Sender: FDA-Public Use
  Company Number: US-UCBSA-2020025417

PATIENT
  Age: 25 Year
  Sex: Male

DRUGS (2)
  1. LACOSAMIDE [Suspect]
     Active Substance: LACOSAMIDE
     Indication: Partial seizures
     Dosage: 200 MILLIGRAM, 2X/DAY (BID)
     Dates: start: 2019
  2. LACOSAMIDE [Suspect]
     Active Substance: LACOSAMIDE
     Indication: Seizure

REACTIONS (4)
  - Brain neoplasm [Unknown]
  - Brain operation [Recovered/Resolved]
  - Generalised tonic-clonic seizure [Recovered/Resolved]
  - Memory impairment [Recovering/Resolving]

NARRATIVE: CASE EVENT DATE: 20190901
